FAERS Safety Report 6998364-8 (Version None)
Quarter: 2010Q3

REPORT INFORMATION
  Report Type: 
  Country: None (occurrence: None)
  Receive Date: 20100920
  Receipt Date: 20100908
  Transmission Date: 20110219
  Serious: No
  Sender: FDA-Public Use
  Company Number: US-JNJFOC-20100903180

PATIENT
  Sex: Female
  Weight: 63.5 kg

DRUGS (10)
  1. FENTANYL [Suspect]
     Indication: HEADACHE
     Route: 062
  2. FENTANYL [Suspect]
     Indication: BACK PAIN
     Route: 062
  3. FENTANYL [Suspect]
     Route: 062
  4. FENTANYL [Suspect]
     Route: 062
  5. FENTANYL [Suspect]
     Route: 062
  6. FENTANYL [Suspect]
     Route: 062
  7. FENTANYL CITRATE [Suspect]
     Indication: HEADACHE
     Route: 062
  8. FENTANYL CITRATE [Suspect]
     Indication: BACK PAIN
     Route: 062
  9. PAMELOR [Concomitant]
     Indication: PANIC ATTACK
     Route: 048
  10. LYRICA [Concomitant]
     Indication: FIBROMYALGIA
     Route: 048

REACTIONS (5)
  - DRUG ADMINISTRATION ERROR [None]
  - HEADACHE [None]
  - PAIN [None]
  - PALMAR ERYTHEMA [None]
  - PRURITUS [None]
